FAERS Safety Report 9076939 (Version 1)
Quarter: 2013Q1

REPORT INFORMATION
  Report Type: Report from Study
  Country: US (occurrence: US)
  Receive Date: 20130129
  Receipt Date: 20130129
  Transmission Date: 20140127
  Serious: No
  Sender: FDA-Public Use
  Company Number: US-ABBOTT-12P-163-0944687-00

PATIENT
  Age: 17 None
  Sex: Male
  Weight: 72.64 kg

DRUGS (3)
  1. HUMIRA 40 MG/0.8 ML PEN [Suspect]
     Indication: ANKYLOSING SPONDYLITIS
     Dates: start: 201104
  2. METHOTREXATE [Concomitant]
     Indication: ANKYLOSING SPONDYLITIS
  3. BROMDAY [Concomitant]
     Indication: EYE INFLAMMATION
     Route: 047

REACTIONS (3)
  - Injection site pain [Not Recovered/Not Resolved]
  - Device malfunction [Unknown]
  - Incorrect dose administered [Unknown]
